FAERS Safety Report 15877788 (Version 2)
Quarter: 2019Q1

REPORT INFORMATION
  Report Type: Spontaneous
  Country: US (occurrence: US)
  Receive Date: 20190128
  Receipt Date: 20190201
  Transmission Date: 20190417
  Serious: Yes (Other)
  Sender: FDA-Public Use
  Company Number: US-ASTRAZENECA-2018SF14263

PATIENT
  Sex: Male

DRUGS (33)
  1. PLAVIX [Concomitant]
     Active Substance: CLOPIDOGREL BISULFATE
  2. HYDRALAZINE [Concomitant]
     Active Substance: HYDRALAZINE HYDROCHLORIDE
  3. MORPHINE [Concomitant]
     Active Substance: MORPHINE
  4. AMITRIPTYLINE [Concomitant]
     Active Substance: AMITRIPTYLINE
  5. PHENERGAN [Concomitant]
     Active Substance: PROMETHAZINE HYDROCHLORIDE
  6. LOSARTAN. [Concomitant]
     Active Substance: LOSARTAN
  7. LISINOPRIL. [Concomitant]
     Active Substance: LISINOPRIL
  8. PROMETHAZINE [Concomitant]
     Active Substance: PROMETHAZINE\PROMETHAZINE HYDROCHLORIDE
  9. ONDANSETRON [Concomitant]
     Active Substance: ONDANSETRON
  10. CLINDAMYCIN. [Concomitant]
     Active Substance: CLINDAMYCIN
  11. DEXILANT [Suspect]
     Active Substance: DEXLANSOPRAZOLE
     Route: 065
     Dates: start: 20120926, end: 20160511
  12. CARVEDILOL. [Concomitant]
     Active Substance: CARVEDILOL
  13. LEVOTHYROXINE. [Concomitant]
     Active Substance: LEVOTHYROXINE
  14. SUCRALFATE. [Concomitant]
     Active Substance: SUCRALFATE
  15. AMITRIPTYLINE [Concomitant]
     Active Substance: AMITRIPTYLINE
  16. ASPIRIN. [Concomitant]
     Active Substance: ASPIRIN
  17. IMDUR [Concomitant]
     Active Substance: ISOSORBIDE MONONITRATE
  18. GABAPENTIN. [Concomitant]
     Active Substance: GABAPENTIN
  19. METOCLOPRAMID [Concomitant]
     Active Substance: METOCLOPRAMIDE
  20. METHYLPREDNISOLONE. [Concomitant]
     Active Substance: METHYLPREDNISOLONE
  21. LIPITOR [Concomitant]
     Active Substance: ATORVASTATIN CALCIUM
  22. GLIPIZIDE. [Concomitant]
     Active Substance: GLIPIZIDE
  23. LANTUS [Concomitant]
     Active Substance: INSULIN GLARGINE
  24. PANTOPRAZOLE [Concomitant]
     Active Substance: PANTOPRAZOLE
  25. OMEPRAZOLE. [Concomitant]
     Active Substance: OMEPRAZOLE
  26. JANUVIA [Concomitant]
     Active Substance: SITAGLIPTIN PHOSPHATE
  27. NEXIUM [Suspect]
     Active Substance: ESOMEPRAZOLE MAGNESIUM
     Route: 048
     Dates: start: 20120926, end: 20160511
  28. METOPROLOL. [Concomitant]
     Active Substance: METOPROLOL
  29. BACLOFEN. [Concomitant]
     Active Substance: BACLOFEN
  30. TRAZODONE [Concomitant]
     Active Substance: TRAZODONE HYDROCHLORIDE
  31. FLUTICASONE. [Concomitant]
     Active Substance: FLUTICASONE
  32. RANITIDINE. [Concomitant]
     Active Substance: RANITIDINE
  33. HYDROCODONE BITARTRATE AND ACETAMINOPHEN [Concomitant]
     Active Substance: ACETAMINOPHEN\HYDROCODONE BITARTRATE

REACTIONS (8)
  - Type 2 diabetes mellitus [Unknown]
  - Diabetic retinopathy [Unknown]
  - Chronic kidney disease [Unknown]
  - Acute kidney injury [Unknown]
  - Diabetic gastroparesis [Unknown]
  - Renal failure [Unknown]
  - End stage renal disease [Unknown]
  - Nephropathy [Unknown]
